FAERS Safety Report 17808982 (Version 2)
Quarter: 2020Q2

REPORT INFORMATION
  Report Type: Spontaneous
  Country: IT (occurrence: IT)
  Receive Date: 20200520
  Receipt Date: 20200601
  Transmission Date: 20200714
  Serious: Yes (Other)
  Sender: FDA-Public Use
  Company Number: IT-AMERICAN REGENT INC-2020001076

PATIENT
  Age: 34 Year
  Sex: Female
  Weight: 50 kg

DRUGS (2)
  1. FERINJECT [Suspect]
     Active Substance: FERRIC CARBOXYMALTOSE
     Dosage: 750 MG, 1 IN 1 WK
     Dates: start: 20200414, end: 20200421
  2. FERINJECT [Suspect]
     Active Substance: FERRIC CARBOXYMALTOSE
     Indication: IRON DEFICIENCY ANAEMIA
     Dosage: 750 MILLIGRAM, 1 IN 1 WK
     Dates: start: 20200407, end: 20200414

REACTIONS (2)
  - Hypophosphataemia [Not Recovered/Not Resolved]
  - Hyperphosphaturia [Not Recovered/Not Resolved]

NARRATIVE: CASE EVENT DATE: 20200423
